FAERS Safety Report 4993391-4 (Version None)
Quarter: 2006Q2

REPORT INFORMATION
  Report Type: 
  Country: None (occurrence: None)
  Receive Date: 20060503
  Receipt Date: 20060503
  Transmission Date: 20061013
  Serious: Yes (Life-Threatening, Disabling, Other)
  Sender: FDA-Public Use
  Company Number: None

PATIENT
  Age: 44 Year
  Sex: Female
  Weight: 127.0072 kg

DRUGS (1)
  1. SEROQUEL [Suspect]
     Indication: ANXIETY
     Dosage: YEARS
     Dates: start: 20000609

REACTIONS (4)
  - DIABETES MELLITUS [None]
  - LOSS OF EMPLOYMENT [None]
  - SUICIDE ATTEMPT [None]
  - WEIGHT INCREASED [None]
